FAERS Safety Report 4852214-4 (Version None)
Quarter: 2005Q4

REPORT INFORMATION
  Report Type: 
  Country: None (occurrence: None)
  Receive Date: 20051213
  Receipt Date: 20051209
  Transmission Date: 20060501
  Serious: Yes (Other)
  Sender: FDA-Public Use
  Company Number: AU-GLAXOSMITHKLINE-B0403383A

PATIENT
  Sex: Female

DRUGS (1)
  1. AROPAX [Suspect]
     Indication: DRUG USE FOR UNKNOWN INDICATION
     Dosage: 10MG PER DAY
     Route: 048

REACTIONS (4)
  - BLOOD COUNT ABNORMAL [None]
  - BLOOD TEST ABNORMAL [None]
  - CONTUSION [None]
  - HEREDITARY HAEMORRHAGIC TELANGIECTASIA [None]
